FAERS Safety Report 13225927 (Version 1)
Quarter: 2017Q1

REPORT INFORMATION
  Report Type: Report from Study
  Country: None (occurrence: CA)
  Receive Date: 20170213
  Receipt Date: 20170213
  Transmission Date: 20170428
  Serious: Yes (Hospitalization)
  Sender: FDA-Public Use
  Company Number: CA-CLOVIS-2016-0338-0045

PATIENT
  Age: 65 Year
  Sex: Female
  Weight: 54.5 kg

DRUGS (2)
  1. NIFEDIPINE. [Concomitant]
     Active Substance: NIFEDIPINE
  2. CO-338 [Suspect]
     Active Substance: RUCAPARIB
     Indication: OVARIAN CANCER
     Route: 048
     Dates: start: 20151210, end: 20160304

REACTIONS (11)
  - Sepsis [Recovered/Resolved]
  - Streptococcus test positive [None]
  - Epiglottic oedema [None]
  - Vomiting [None]
  - Bone marrow failure [None]
  - White blood cell count decreased [Recovered/Resolved]
  - Febrile neutropenia [Recovered/Resolved]
  - Tonsillar hypertrophy [None]
  - Oropharyngeal pain [None]
  - Infection susceptibility increased [None]
  - Nausea [None]

NARRATIVE: CASE EVENT DATE: 20160307
